FAERS Safety Report 16006350 (Version 1)
Quarter: 2019Q1

REPORT INFORMATION
  Report Type: Spontaneous
  Country: US (occurrence: US)
  Receive Date: 20190225
  Receipt Date: 20190225
  Transmission Date: 20190418
  Serious: No
  Sender: FDA-Public Use
  Company Number: US-PFIZER INC-2017101354

PATIENT
  Age: 56 Year
  Sex: Female
  Weight: 100 kg

DRUGS (2)
  1. LYRICA [Suspect]
     Active Substance: PREGABALIN
     Indication: RADICULOPATHY
     Dosage: 100 MG, TWICE DAILY AND 3 CAPSULES EVERY NIGHT AT BEDTIME
     Route: 048
  2. LYRICA [Suspect]
     Active Substance: PREGABALIN
     Indication: SPINAL COLUMN STENOSIS
     Dosage: UNK
     Route: 048
     Dates: end: 201702

REACTIONS (4)
  - Intentional product use issue [Unknown]
  - Product use issue [Unknown]
  - Chest discomfort [Unknown]
  - Muscle strain [Unknown]

NARRATIVE: CASE EVENT DATE: 201701
